FAERS Safety Report 15386992 (Version 1)
Quarter: 2018Q3

REPORT INFORMATION
  Report Type: Spontaneous
  Country: US (occurrence: US)
  Receive Date: 20180914
  Receipt Date: 20180914
  Transmission Date: 20181010
  Serious: No
  Sender: FDA-Public Use
  Company Number: US-ELI_LILLY_AND_COMPANY-US201809001735

PATIENT
  Age: 66 Year
  Sex: Male
  Weight: 94 kg

DRUGS (3)
  1. CEFTIN [Suspect]
     Active Substance: CEFUROXIME AXETIL
     Indication: PNEUMONIA
     Dosage: UNK, UNKNOWN
     Route: 065
  2. NYSTATIN. [Suspect]
     Active Substance: NYSTATIN
     Indication: CANDIDA INFECTION
     Dosage: UNK, UNKNOWN
     Route: 058
  3. CYMBALTA [Suspect]
     Active Substance: DULOXETINE HYDROCHLORIDE
     Indication: AUTOIMMUNE DISORDER
     Dosage: UNK UNK, UNKNOWN
     Route: 065
     Dates: start: 20180611, end: 20180615

REACTIONS (8)
  - Oxygen saturation decreased [Recovered/Resolved]
  - Red blood cell sedimentation rate increased [Unknown]
  - Hypersensitivity [Recovered/Resolved]
  - Rash [Recovered/Resolved]
  - Candida infection [Recovered/Resolved]
  - Hypotension [Recovered/Resolved]
  - Headache [Recovering/Resolving]
  - Neuralgia [Unknown]

NARRATIVE: CASE EVENT DATE: 20180611
